FAERS Safety Report 8261511-4 (Version None)
Quarter: 2012Q2

REPORT INFORMATION
  Report Type: 
  Country: None (occurrence: None)
  Receive Date: 20120405
  Receipt Date: 20120328
  Transmission Date: 20120825
  Serious: Yes (Other)
  Sender: FDA-Public Use
  Company Number: IT-ASTELLAS-2012US003265

PATIENT

DRUGS (1)
  1. TARCEVA [Suspect]
     Indication: PRODUCT USED FOR UNKNOWN INDICATION
     Dosage: UNK
     Route: 048

REACTIONS (5)
  - THROMBOCYTOPENIA [None]
  - RASH [None]
  - STOMATITIS [None]
  - DIARRHOEA [None]
  - CONJUNCTIVITIS [None]
